FAERS Safety Report 8598402-5 (Version None)
Quarter: 2012Q3

REPORT INFORMATION
  Report Type: 
  Country: None (occurrence: None)
  Receive Date: 20120816
  Receipt Date: 20120809
  Transmission Date: 20120928
  Serious: Yes (Hospitalization, Other)
  Sender: FDA-Public Use
  Company Number: RO-ABBOTT-12P-135-0967491-00

PATIENT
  Sex: Male
  Weight: 87 kg

DRUGS (5)
  1. ASPIRIN [Suspect]
     Indication: HYPERTENSION
     Dosage: 75 MG DAILY
     Route: 048
     Dates: start: 20080101, end: 20120730
  2. ENALAPRIL MALEATE [Suspect]
     Indication: HYPERTENSION
     Dosage: 5 MG DAILY
     Dates: start: 20090101, end: 20120730
  3. SINTROM [Suspect]
     Indication: THROMBOSIS PROPHYLAXIS
     Dosage: 4 MG DAILY
     Route: 048
     Dates: start: 20110101, end: 20120730
  4. HUMIRA [Suspect]
     Indication: PSORIASIS
     Route: 058
     Dates: start: 20100901, end: 20120730
  5. CARVEDILOL [Suspect]
     Indication: HYPERTENSION
     Dosage: 12.5 MG DAILY
     Route: 048
     Dates: start: 20090101, end: 20120730

REACTIONS (4)
  - GENERAL PHYSICAL HEALTH DETERIORATION [None]
  - MELAENA [None]
  - PYREXIA [None]
  - INTERSTITIAL LUNG DISEASE [None]
